FAERS Safety Report 4324908-0 (Version None)
Quarter: 2004Q1

REPORT INFORMATION
  Report Type: 
  Country: None (occurrence: None)
  Receive Date: 20040323
  Receipt Date: 20040211
  Transmission Date: 20041129
  Serious: No
  Sender: FDA-Public Use
  Company Number: US_0402100769

PATIENT
  Sex: Male

DRUGS (4)
  1. CIALIS [Suspect]
     Dosage: 10 MG
     Dates: start: 20040128
  2. AVAPRO [Concomitant]
  3. AVANDAMET [Concomitant]
  4. AMARYL [Concomitant]

REACTIONS (1)
  - DRUG INEFFECTIVE [None]
